FAERS Safety Report 11719941 (Version 2)
Quarter: 2015Q4

REPORT INFORMATION
  Report Type: Spontaneous
  Country: JP (occurrence: JP)
  Receive Date: 20151110
  Receipt Date: 20151211
  Transmission Date: 20160304
  Serious: Yes (Other)
  Sender: FDA-Public Use
  Company Number: JP-ELI_LILLY_AND_COMPANY-JP201511002408

PATIENT
  Age: 72 Year
  Sex: Male
  Weight: 56 kg

DRUGS (12)
  1. PRASUGREL HYDROCHLORIDE [Suspect]
     Active Substance: PRASUGREL HYDROCHLORIDE
     Indication: MYOCARDIAL ISCHAEMIA
     Dosage: 3.75 MG, QD
     Route: 048
     Dates: start: 20150518, end: 20150526
  2. SALOBEL [Concomitant]
     Active Substance: ALLOPURINOL
     Indication: HYPERURICAEMIA
     Dosage: 100 MG, QD
     Route: 048
     Dates: start: 20150525, end: 20150526
  3. FAMOTIDINE. [Concomitant]
     Active Substance: FAMOTIDINE
     Indication: CHRONIC GASTRITIS
     Dosage: 20 MG, QD
     Route: 048
     Dates: start: 20150525, end: 20150526
  4. SUNRYTHM [Concomitant]
     Active Substance: PILSICAINIDE HYDROCHLORIDE
     Indication: ATRIAL FIBRILLATION
     Dosage: 50 MG, BID
     Route: 048
  5. OPTIRAY [Suspect]
     Active Substance: IOVERSOL
     Indication: PRODUCT USED FOR UNKNOWN INDICATION
     Dosage: UNK
     Route: 065
  6. ITOROL [Concomitant]
     Active Substance: ISOSORBIDE MONONITRATE
     Indication: ANGINA PECTORIS
     Dosage: 20 MG, BID
     Route: 048
  7. TENORMIN [Concomitant]
     Active Substance: ATENOLOL
     Indication: ANGINA PECTORIS
     Dosage: 25 MG, QD
     Route: 048
  8. PRASUGREL HYDROCHLORIDE [Suspect]
     Active Substance: PRASUGREL HYDROCHLORIDE
     Indication: PERCUTANEOUS CORONARY INTERVENTION
  9. AMLODIPINE [Concomitant]
     Active Substance: AMLODIPINE BESYLATE
     Indication: HYPERTENSION
     Dosage: 5 MG, BID
     Route: 048
     Dates: start: 20150522
  10. WARFARIN [Concomitant]
     Active Substance: WARFARIN
     Indication: ATRIAL FIBRILLATION
     Dosage: 2.5 MG, QD
     Route: 048
  11. WARFARIN [Concomitant]
     Active Substance: WARFARIN
     Dosage: 3 MG, QD
     Route: 048
  12. BAYASPIRIN [Concomitant]
     Active Substance: ASPIRIN
     Indication: PERCUTANEOUS CORONARY INTERVENTION
     Dosage: UNK
     Dates: start: 20150518

REACTIONS (1)
  - Rash erythematous [Recovered/Resolved]

NARRATIVE: CASE EVENT DATE: 20150526
